FAERS Safety Report 18332511 (Version 3)
Quarter: 2020Q4

REPORT INFORMATION
  Report Type: Spontaneous
  Country: US (occurrence: US)
  Receive Date: 20200930
  Receipt Date: 20201012
  Transmission Date: 20210113
  Serious: Yes (Other)
  Sender: FDA-Public Use
  Company Number: US-SEATTLE GENETICS-2020SGN04302

PATIENT
  Age: 73 Year
  Sex: Male

DRUGS (1)
  1. ADCETRIS [Suspect]
     Active Substance: BRENTUXIMAB VEDOTIN
     Indication: CUTANEOUS T-CELL LYMPHOMA
     Route: 065

REACTIONS (5)
  - Balance disorder [Unknown]
  - Renal failure [Unknown]
  - Dizziness [Unknown]
  - Bladder neck obstruction [Unknown]
  - Urinary retention [Unknown]
